FAERS Safety Report 18391435 (Version 1)
Quarter: 2020Q4

REPORT INFORMATION
  Report Type: Spontaneous
  Country: AR (occurrence: AR)
  Receive Date: 20201015
  Receipt Date: 20201015
  Transmission Date: 20210114
  Serious: Yes (Other)
  Sender: FDA-Public Use
  Company Number: AR-PFIZER INC-2020394420

PATIENT
  Age: 13 Year
  Sex: Male

DRUGS (1)
  1. GENOTROPIN [Suspect]
     Active Substance: SOMATROPIN
     Indication: GROWTH HORMONE DEFICIENCY
     Dosage: 1 MG TO 1.4 MG (6 TIMES PER WEEK)
     Dates: start: 20160705

REACTIONS (3)
  - Fall [Unknown]
  - Expired product administered [Unknown]
  - Joint dislocation [Unknown]

NARRATIVE: CASE EVENT DATE: 202010
